FAERS Safety Report 26145386 (Version 1)
Quarter: 2025Q4

REPORT INFORMATION
  Report Type: Report from Study
  Country: US (occurrence: US)
  Receive Date: 20251211
  Receipt Date: 20251211
  Transmission Date: 20260118
  Serious: Yes (Hospitalization, Other)
  Sender: BOEHRINGER INGELHEIM
  Company Number: US-BoehringerIngelheim-2025-BI-074550

PATIENT
  Age: 78 Year
  Sex: Male

DRUGS (4)
  1. OFEV [Suspect]
     Active Substance: NINTEDANIB
     Indication: Chronic obstructive pulmonary disease
     Dates: end: 2025
  2. OFEV [Suspect]
     Active Substance: NINTEDANIB
     Indication: Idiopathic pulmonary fibrosis
  3. WARFARIN [Concomitant]
     Active Substance: WARFARIN
  4. ELIQUIS [Concomitant]
     Active Substance: APIXABAN

REACTIONS (15)
  - Deep vein thrombosis [Not Recovered/Not Resolved]
  - Lung disorder [Unknown]
  - Haematochezia [Not Recovered/Not Resolved]
  - Diarrhoea [Recovered/Resolved]
  - Mobility decreased [Not Recovered/Not Resolved]
  - Flatulence [Recovering/Resolving]
  - Pleuritic pain [Unknown]
  - Dyspnoea [Not Recovered/Not Resolved]
  - Wheezing [Unknown]
  - Increased viscosity of bronchial secretion [Recovering/Resolving]
  - Diarrhoea [Not Recovered/Not Resolved]
  - Intentional product use issue [Unknown]
  - Cardiovascular disorder [Unknown]
  - Depression [Not Recovered/Not Resolved]
  - Anxiety [Not Recovered/Not Resolved]

NARRATIVE: CASE EVENT DATE: 20250530
